FAERS Safety Report 5737745-7 (Version None)
Quarter: 2008Q2

REPORT INFORMATION
  Report Type: 
  Country: None (occurrence: None)
  Receive Date: 20080514
  Receipt Date: 20080512
  Transmission Date: 20081010
  Serious: Yes (Hospitalization)
  Sender: FDA-Public Use
  Company Number: B0520035A

PATIENT
  Age: 74 Year
  Sex: Male

DRUGS (6)
  1. REQUIP [Suspect]
     Indication: PARKINSON'S DISEASE
     Dosage: 14MG THREE TIMES PER DAY
     Route: 048
     Dates: start: 20080201, end: 20080312
  2. SEROQUEL [Suspect]
     Indication: CONDUCT DISORDER
     Dosage: 100MG TWICE PER DAY
     Route: 048
     Dates: start: 20080101, end: 20080312
  3. TERBUTALINE SULFATE [Concomitant]
     Route: 048
  4. TORSEMIDE [Concomitant]
     Indication: DRUG USE FOR UNKNOWN INDICATION
     Dosage: 20MG TWICE PER DAY
     Route: 048
  5. SINEMET [Concomitant]
     Indication: PARKINSON'S DISEASE
     Route: 048
  6. AMLODIPINE BESYLATE [Concomitant]
     Indication: HYPERTENSION
     Dosage: 5MG PER DAY
     Route: 048
     Dates: start: 20080101, end: 20080312

REACTIONS (4)
  - BLOOD CREATINE PHOSPHOKINASE INCREASED [None]
  - DYSKINESIA [None]
  - NEUROLEPTIC MALIGNANT SYNDROME [None]
  - PYREXIA [None]
